FAERS Safety Report 6659641-3 (Version None)
Quarter: 2010Q1

REPORT INFORMATION
  Report Type: 
  Country: None (occurrence: None)
  Receive Date: 20100322
  Receipt Date: 20091102
  Transmission Date: 20100710
  Serious: Yes (Hospitalization, Other)
  Sender: FDA-Public Use
  Company Number: 76041

PATIENT
  Sex: Male

DRUGS (9)
  1. ISOTRETINOIN [Suspect]
     Indication: ACNE
     Dosage: ORAL
     Route: 048
     Dates: start: 20040301, end: 20041001
  2. ISOTRETINOIN [Suspect]
     Indication: ACNE
     Dosage: ORAL
     Route: 048
     Dates: start: 20050101, end: 20051201
  3. ISOTRETINOIN [Suspect]
     Indication: ACNE
     Dosage: ORAL
     Route: 048
     Dates: start: 20060201, end: 20060301
  4. ISOTRETINOIN [Suspect]
     Indication: ACNE
     Dosage: ORAL
     Route: 048
     Dates: start: 20060601, end: 20060801
  5. AMNESTEEM [Suspect]
     Indication: ACNE
     Dosage: ORAL
     Route: 048
     Dates: start: 20021101, end: 20030101
  6. ACCUTANE [Suspect]
     Dosage: ORAL
     Route: 048
     Dates: start: 20010101, end: 20010601
  7. ACCUTANE [Suspect]
     Dosage: ORAL
     Route: 048
     Dates: start: 20011001, end: 20011101
  8. ACCUTANE [Suspect]
     Dosage: ORAL
     Route: 048
     Dates: start: 20020101, end: 20020601
  9. ACCUTANE [Suspect]
     Dosage: ORAL
     Route: 048
     Dates: start: 20020801, end: 20020901

REACTIONS (1)
  - INFLAMMATORY BOWEL DISEASE [None]
